FAERS Safety Report 15870960 (Version 1)
Quarter: 2019Q1

REPORT INFORMATION
  Report Type: Spontaneous
  Country: US (occurrence: US)
  Receive Date: 20190126
  Receipt Date: 20190126
  Transmission Date: 20190417
  Serious: No
  Sender: FDA-Public Use
  Company Number: US-LEO PHARMA-316353

PATIENT
  Sex: Female

DRUGS (2)
  1. PICATO [Suspect]
     Active Substance: INGENOL MEBUTATE
     Dosage: 4 YEARS AGO
  2. PICATO [Suspect]
     Active Substance: INGENOL MEBUTATE
     Indication: ACTINIC KERATOSIS
     Dosage: DAILY
     Route: 061
     Dates: start: 20190114, end: 20190116

REACTIONS (3)
  - Application site exfoliation [Not Recovered/Not Resolved]
  - Inappropriate schedule of product administration [Unknown]
  - Application site erythema [Not Recovered/Not Resolved]
